FAERS Safety Report 18828111 (Version 3)
Quarter: 2021Q1

REPORT INFORMATION
  Report Type: Report from Study
  Country: None (occurrence: CO)
  Receive Date: 20210202
  Receipt Date: 20210226
  Transmission Date: 20210419
  Serious: Yes (Death, Hospitalization)
  Sender: FDA-Public Use
  Company Number: CO-ABBVIE-20K-036-3592513-00

PATIENT
  Age: 63 Year
  Sex: Female
  Weight: 49 kg

DRUGS (2)
  1. IMBRUVICA [Suspect]
     Active Substance: IBRUTINIB
     Route: 048
     Dates: start: 20200902
  2. IMBRUVICA [Suspect]
     Active Substance: IBRUTINIB
     Indication: MARGINAL ZONE LYMPHOMA
     Route: 048
     Dates: start: 20190906, end: 20210219

REACTIONS (3)
  - Vasculitis [Recovering/Resolving]
  - Splenomegaly [Not Recovered/Not Resolved]
  - COVID-19 [Fatal]

NARRATIVE: CASE EVENT DATE: 20200902
